FAERS Safety Report 14265708 (Version 20)
Quarter: 2020Q4

REPORT INFORMATION
  Report Type: Spontaneous
  Country: DE (occurrence: DE)
  Receive Date: 20171208
  Receipt Date: 20201013
  Transmission Date: 20210113
  Serious: Yes (Life-Threatening, Hospitalization, Disabling, Other)
  Sender: FDA-Public Use
  Company Number: DE-BAUSCH-BL-2017-032550

PATIENT
  Age: 69 Year
  Sex: Male
  Weight: 90 kg

DRUGS (64)
  1. DEXAMETHASONE. [Suspect]
     Active Substance: DEXAMETHASONE
     Indication: PROCEDURAL VOMITING
     Route: 048
     Dates: start: 20170922, end: 20180123
  2. DEXAMETHASONE. [Suspect]
     Active Substance: DEXAMETHASONE
     Indication: VISION BLURRED
     Route: 048
     Dates: start: 20180124, end: 20180220
  3. DEXAMETHASONE. [Suspect]
     Active Substance: DEXAMETHASONE
     Route: 048
     Dates: start: 20180724, end: 20180806
  4. DEXAMETHASONE. [Suspect]
     Active Substance: DEXAMETHASONE
     Route: 048
     Dates: start: 20180828, end: 20180831
  5. VEMURAFENIB. [Suspect]
     Active Substance: VEMURAFENIB
     Route: 048
     Dates: start: 20170904, end: 20170906
  6. DEXAMETHASONE. [Suspect]
     Active Substance: DEXAMETHASONE
     Indication: PROCEDURAL VOMITING
  7. MONO EMBOLEX [Concomitant]
     Active Substance: CERTOPARIN SODIUM
     Indication: PROPHYLAXIS
     Dosage: INDICATION: EMBOLISM PROPHYLAXIS BECAUSE OF CORONARY HEART DISEASE
     Route: 058
     Dates: start: 20170131
  8. VIMPAT [Concomitant]
     Active Substance: LACOSAMIDE
     Indication: EPILEPSY
  9. DEXAMETHASONE. [Suspect]
     Active Substance: DEXAMETHASONE
     Indication: SEROUS RETINOPATHY
  10. DEXAMETHASONE. [Suspect]
     Active Substance: DEXAMETHASONE
     Indication: PROCEDURAL HEADACHE
  11. RAMIPRIL. [Concomitant]
     Active Substance: RAMIPRIL
     Indication: HYPERTENSION
     Dosage: MOST RECENT DOSE 02/NOV/2017
     Route: 048
     Dates: start: 20140501
  12. VOMEX A [Concomitant]
     Active Substance: DIMENHYDRINATE
     Indication: PAIN
     Dosage: IN CASE OF NAUSEA MAX. 3 TIMES PER DAY
     Route: 065
     Dates: start: 20180620, end: 20191119
  13. VOMEX A [Concomitant]
     Active Substance: DIMENHYDRINATE
     Indication: PROPHYLAXIS OF NAUSEA AND VOMITING
  14. DEXAMETHASONE. [Suspect]
     Active Substance: DEXAMETHASONE
     Indication: PROCEDURAL NAUSEA
     Route: 031
     Dates: start: 20170929
  15. COBIMETINIB. [Suspect]
     Active Substance: COBIMETINIB
     Route: 048
     Dates: start: 20170831, end: 20170903
  16. VEMURAFENIB. [Suspect]
     Active Substance: VEMURAFENIB
     Route: 048
     Dates: start: 20180314, end: 20180619
  17. LEVETIRACETAM. [Concomitant]
     Active Substance: LEVETIRACETAM
     Indication: METASTASES TO CENTRAL NERVOUS SYSTEM
     Route: 048
  18. METOPROLOL. [Concomitant]
     Active Substance: METOPROLOL
     Indication: HYPERTENSION
     Route: 048
     Dates: start: 20140501
  19. MOVICOL [Concomitant]
     Active Substance: POLYETHYLENE GLYCOL 3350\POTASSIUM CHLORIDE\SODIUM BICARBONATE\SODIUM CHLORIDE
     Indication: PROPHYLAXIS
     Route: 048
     Dates: start: 20190124, end: 20190507
  20. FERRO SANOL [Concomitant]
     Active Substance: FERROUS GLYCINE SULFATE
     Indication: PROPHYLAXIS
     Route: 048
     Dates: start: 20181022, end: 20181203
  21. DEXAMETHASONE. [Suspect]
     Active Substance: DEXAMETHASONE
     Indication: BRAIN OEDEMA
     Route: 048
     Dates: start: 20180516, end: 20180603
  22. DEXAMETHASONE. [Suspect]
     Active Substance: DEXAMETHASONE
     Route: 048
     Dates: start: 20180612, end: 20180709
  23. COBIMETINIB. [Suspect]
     Active Substance: COBIMETINIB
     Route: 048
     Dates: start: 20171113, end: 20180423
  24. VEMURAFENIB. [Suspect]
     Active Substance: VEMURAFENIB
     Route: 048
     Dates: start: 20170831, end: 20170903
  25. VEMURAFENIB. [Suspect]
     Active Substance: VEMURAFENIB
     Route: 048
     Dates: start: 20170827, end: 20170828
  26. VIMPAT [Concomitant]
     Active Substance: LACOSAMIDE
     Indication: PROPHYLAXIS
     Route: 048
     Dates: start: 20190426
  27. DEXAMETHASONE. [Suspect]
     Active Substance: DEXAMETHASONE
     Indication: PROCEDURAL NAUSEA
     Route: 048
     Dates: start: 20170901, end: 20170903
  28. COBIMETINIB. [Suspect]
     Active Substance: COBIMETINIB
     Indication: METASTATIC MALIGNANT MELANOMA
     Dosage: DOSE 20 MG X 3 (60 MG)
     Route: 048
     Dates: start: 20170823, end: 20170828
  29. COBIMETINIB. [Suspect]
     Active Substance: COBIMETINIB
     Route: 048
     Dates: start: 20180424, end: 20180514
  30. VEMURAFENIB. [Suspect]
     Active Substance: VEMURAFENIB
     Indication: METASTATIC MALIGNANT MELANOMA
     Route: 048
     Dates: start: 20170907, end: 20180308
  31. VEMURAFENIB. [Suspect]
     Active Substance: VEMURAFENIB
     Route: 048
     Dates: start: 20170903, end: 20170903
  32. DEXAMETHASONE. [Suspect]
     Active Substance: DEXAMETHASONE
     Indication: PROCEDURAL NAUSEA
     Route: 031
     Dates: start: 20170929
  33. FOLVERLAN [Concomitant]
     Active Substance: FOLIC ACID
     Indication: PROPHYLAXIS
     Dosage: UNIT DOSE: ONE (UNSPECIFIED UNIT), PROPHYLAXIS OF FOLATE STORAGE
     Route: 048
     Dates: start: 20181022, end: 20181203
  34. DEXAMETHASONE. [Suspect]
     Active Substance: DEXAMETHASONE
     Indication: PROCEDURAL VOMITING
  35. DEXAMETHASONE. [Suspect]
     Active Substance: DEXAMETHASONE
     Indication: METASTASES TO CENTRAL NERVOUS SYSTEM
  36. DEXAMETHASONE. [Suspect]
     Active Substance: DEXAMETHASONE
     Indication: PROCEDURAL HEADACHE
     Route: 048
     Dates: start: 20170904, end: 20170921
  37. DEXAMETHASONE. [Suspect]
     Active Substance: DEXAMETHASONE
     Indication: SEROUS RETINOPATHY
     Route: 048
     Dates: start: 20180409, end: 20180515
  38. DEXAMETHASONE. [Suspect]
     Active Substance: DEXAMETHASONE
     Indication: METASTASES TO CENTRAL NERVOUS SYSTEM
     Route: 048
     Dates: start: 20180604, end: 20180606
  39. DEXAMETHASONE. [Suspect]
     Active Substance: DEXAMETHASONE
     Route: 048
     Dates: start: 20180807, end: 20180820
  40. COBIMETINIB. [Suspect]
     Active Substance: COBIMETINIB
     Route: 048
     Dates: start: 20170903, end: 20170903
  41. VEMURAFENIB. [Suspect]
     Active Substance: VEMURAFENIB
     Dosage: DOSE 240 MG X 4 (960 MG)
     Route: 048
     Dates: start: 20170823, end: 20170826
  42. DEXAMETHASONE. [Suspect]
     Active Substance: DEXAMETHASONE
     Indication: SEROUS RETINOPATHY
  43. ASPIRIN. [Concomitant]
     Active Substance: ASPIRIN
     Indication: HYPERTENSION
  44. RAMIPRIL. [Concomitant]
     Active Substance: RAMIPRIL
     Indication: VASCULAR GRAFT
  45. SIMVASTATIN. [Concomitant]
     Active Substance: SIMVASTATIN
     Indication: VASCULAR GRAFT
     Route: 048
     Dates: start: 20150501
  46. SIMVASTATIN. [Concomitant]
     Active Substance: SIMVASTATIN
     Indication: HYPERTENSION
  47. ACETYLSALICYLIC ACID [Concomitant]
     Active Substance: ASPIRIN
     Indication: HYPERTENSION
  48. MOVICOL [Concomitant]
     Active Substance: POLYETHYLENE GLYCOL 3350\POTASSIUM CHLORIDE\SODIUM BICARBONATE\SODIUM CHLORIDE
     Indication: CONSTIPATION
  49. DEXAMETHASONE. [Suspect]
     Active Substance: DEXAMETHASONE
     Indication: PROCEDURAL HEADACHE
     Route: 031
     Dates: start: 20170927, end: 20171102
  50. DEXAMETHASONE. [Suspect]
     Active Substance: DEXAMETHASONE
     Indication: VISION BLURRED
  51. DEXAMETHASONE. [Suspect]
     Active Substance: DEXAMETHASONE
     Indication: BRAIN OEDEMA
  52. COBIMETINIB. [Suspect]
     Active Substance: COBIMETINIB
     Route: 048
     Dates: start: 20170904, end: 20180423
  53. VEMURAFENIB. [Suspect]
     Active Substance: VEMURAFENIB
     Route: 048
     Dates: start: 20180823
  54. DEXAMETHASONE. [Suspect]
     Active Substance: DEXAMETHASONE
     Indication: VISION BLURRED
  55. DEXAMETHASONE. [Suspect]
     Active Substance: DEXAMETHASONE
     Indication: METASTASES TO CENTRAL NERVOUS SYSTEM
  56. ASPIRIN. [Concomitant]
     Active Substance: ASPIRIN
     Indication: VASCULAR GRAFT
     Route: 048
     Dates: start: 20140501
  57. LEVETIRACETAM. [Concomitant]
     Active Substance: LEVETIRACETAM
     Indication: MALIGNANT MELANOMA
  58. ACETYLSALICYLIC ACID [Concomitant]
     Active Substance: ASPIRIN
     Indication: VASCULAR GRAFT
     Route: 048
     Dates: start: 20140501
  59. PANTOPRAZOLE [Concomitant]
     Active Substance: PANTOPRAZOLE
     Indication: PROPHYLAXIS
     Route: 048
     Dates: start: 20170201
  60. METOPROLOL. [Concomitant]
     Active Substance: METOPROLOL
     Indication: VASCULAR GRAFT
  61. DEXAMETHASONE. [Suspect]
     Active Substance: DEXAMETHASONE
     Route: 048
     Dates: start: 20180607, end: 20180611
  62. DEXAMETHASONE. [Suspect]
     Active Substance: DEXAMETHASONE
     Route: 048
     Dates: start: 20180710, end: 20180723
  63. DEXAMETHASONE. [Suspect]
     Active Substance: DEXAMETHASONE
     Route: 048
     Dates: start: 20171113, end: 20190223
  64. DEXAMETHASONE. [Suspect]
     Active Substance: DEXAMETHASONE
     Indication: BRAIN OEDEMA

REACTIONS (33)
  - Pain in extremity [Not Recovered/Not Resolved]
  - Monoparesis [Not Recovered/Not Resolved]
  - Cerebral ischaemia [Recovered/Resolved with Sequelae]
  - Peripheral sensory neuropathy [Unknown]
  - Hyperglycaemia [Recovering/Resolving]
  - Cataract [Not Recovered/Not Resolved]
  - Muscular weakness [Unknown]
  - Hyperkeratosis [Unknown]
  - Lymphoedema [Unknown]
  - Skin infection [Unknown]
  - Epilepsy [Unknown]
  - Peripheral motor neuropathy [Unknown]
  - Spinal osteoarthritis [Not Recovered/Not Resolved]
  - Epidural lipomatosis [Not Recovered/Not Resolved]
  - Serous retinopathy [Recovered/Resolved with Sequelae]
  - Subcutaneous abscess [Recovered/Resolved]
  - Mucosal dryness [Recovered/Resolved]
  - Vision blurred [Recovered/Resolved]
  - Pyrexia [Recovered/Resolved]
  - Fatigue [Not Recovered/Not Resolved]
  - Dermal cyst [Not Recovered/Not Resolved]
  - Dysgeusia [Recovered/Resolved]
  - Skin mass [Unknown]
  - Intervertebral disc protrusion [Not Recovered/Not Resolved]
  - Cough [Recovered/Resolved]
  - Peripheral nerve lesion [Unknown]
  - Skin hypopigmentation [Not Recovered/Not Resolved]
  - Fall [Unknown]
  - Brain oedema [Not Recovered/Not Resolved]
  - Pulmonary embolism [Unknown]
  - Photosensitivity reaction [Recovered/Resolved]
  - Small intestinal haemorrhage [Recovered/Resolved]
  - Conjunctivitis [Not Recovered/Not Resolved]

NARRATIVE: CASE EVENT DATE: 20170823
